FAERS Safety Report 6557277-6 (Version None)
Quarter: 2010Q1

REPORT INFORMATION
  Report Type: 
  Country: None (occurrence: None)
  Receive Date: 20100129
  Receipt Date: 20100122
  Transmission Date: 20100710
  Serious: Yes (Hospitalization)
  Sender: FDA-Public Use
  Company Number: US-BIOGENIDEC-2010BI001633

PATIENT
  Sex: Female
  Weight: 85 kg

DRUGS (3)
  1. AVONEX [Suspect]
     Indication: MULTIPLE SCLEROSIS
     Route: 030
     Dates: start: 19971001, end: 20030101
  2. AVONEX [Suspect]
     Route: 030
     Dates: start: 20030101
  3. PAIN MEDICATION (NOS) [Concomitant]
     Indication: ARTHRALGIA
     Route: 048

REACTIONS (8)
  - ABASIA [None]
  - ARTHRALGIA [None]
  - EXTREMITY NECROSIS [None]
  - INJECTION SITE SCAR [None]
  - MULTIPLE SCLEROSIS RELAPSE [None]
  - POSTNASAL DRIP [None]
  - PYODERMA GANGRENOSUM [None]
  - SINUS CONGESTION [None]
